FAERS Safety Report 16844549 (Version 1)
Quarter: 2019Q3

REPORT INFORMATION
  Report Type: Report from Study
  Country: US (occurrence: US)
  Receive Date: 20190924
  Receipt Date: 20190924
  Transmission Date: 20191005
  Serious: Yes (Hospitalization, Other)
  Sender: FDA-Public Use
  Company Number: US-ROCHE-2411978

PATIENT
  Age: 13 Year
  Sex: Male

DRUGS (2)
  1. FOSCARNET [Suspect]
     Active Substance: FOSCARNET
     Indication: PROPHYLAXIS
     Route: 042
  2. GANCICLOVIR. [Suspect]
     Active Substance: GANCICLOVIR
     Indication: PROPHYLAXIS
     Route: 042

REACTIONS (2)
  - Drug resistance [Unknown]
  - Renal tubular disorder [Recovered/Resolved]
